FAERS Safety Report 10215954 (Version 1)
Quarter: 2014Q2

REPORT INFORMATION
  Report Type: Spontaneous
  Country: IT (occurrence: None)
  Receive Date: 20140602
  Receipt Date: 20140602
  Transmission Date: 20141212
  Serious: Yes (Other)
  Sender: FDA-Public Use
  Company Number: 2014P1004604

PATIENT
  Age: 21 Year
  Sex: Female
  Weight: 46 kg

DRUGS (2)
  1. SODIUM CHLORIDE [Suspect]
     Indication: HYPONATRAEMIA
     Route: 042
  2. POTASSIUM LACTATE [Suspect]
     Indication: HYPOKALAEMIA
     Route: 042

REACTIONS (10)
  - Osmotic demyelination syndrome [None]
  - Hypotonia [None]
  - Tremor [None]
  - Muscle spasms [None]
  - Hyperthyroidism [None]
  - Malnutrition [None]
  - Metabolic disorder [None]
  - Exposure during pregnancy [None]
  - Caesarean section [None]
  - Incorrect drug administration rate [None]
